FAERS Safety Report 19585867 (Version 1)
Quarter: 2021Q3

REPORT INFORMATION
  Report Type: Spontaneous
  Country: DE (occurrence: DE)
  Receive Date: 20210720
  Receipt Date: 20210720
  Transmission Date: 20211014
  Serious: Yes (Other)
  Sender: FDA-Public Use
  Company Number: NVSC2021DE157701

PATIENT
  Sex: Female
  Weight: 108 kg

DRUGS (5)
  1. CETIRIZIN AL [Concomitant]
     Indication: PRODUCT USED FOR UNKNOWN INDICATION
     Dosage: 1 DF, PRN (1 TABLET)
     Route: 065
     Dates: start: 202007
  2. IBU LYSIN RATIOPHARM [Concomitant]
     Indication: PRODUCT USED FOR UNKNOWN INDICATION
     Dosage: 1 DF, PRN (1 TABLET)
     Route: 065
     Dates: start: 200107
  3. FENISTIL [Concomitant]
     Active Substance: DIMETHINDENE
     Indication: PRODUCT USED FOR UNKNOWN INDICATION
     Dosage: 1 DF, PRN (1 TABLET)
     Route: 065
     Dates: start: 202107
  4. CLINDAMYCIN ? 1 A PHARMA 600 MG FILMTABLETTEN [Suspect]
     Active Substance: CLINDAMYCIN
     Indication: PRODUCT USED FOR UNKNOWN INDICATION
     Dosage: 3 DF, QD (3 TABLETS)
     Route: 065
     Dates: start: 20210707, end: 202107
  5. SULTAMICILLIN RATIOPHARM [Concomitant]
     Indication: PRODUCT USED FOR UNKNOWN INDICATION
     Dosage: 4 DF, QD (4 TABLETS)
     Route: 065
     Dates: start: 20210708

REACTIONS (4)
  - Cellulitis [Unknown]
  - Rash pruritic [Not Recovered/Not Resolved]
  - Urticaria chronic [Not Recovered/Not Resolved]
  - Rash [Not Recovered/Not Resolved]

NARRATIVE: CASE EVENT DATE: 20210707
